FAERS Safety Report 6442368-0 (Version None)
Quarter: 2009Q4

REPORT INFORMATION
  Report Type: 
  Country: None (occurrence: None)
  Receive Date: 20091112
  Receipt Date: 20091028
  Transmission Date: 20100525
  Serious: Yes (Other)
  Sender: FDA-Public Use
  Company Number: 2280705-2009-00018

PATIENT
  Sex: Female

DRUGS (2)
  1. ARM + HAMMER COMPLETE CARE^ EXTRA WHITENING [Suspect]
     Indication: DENTAL DISORDER PROPHYLAXIS
     Dosage: USED TO BRUSH TEETH
  2. TOOTHPASTE (CONTINUED FROM LINE ABOVE.) [Suspect]

REACTIONS (2)
  - LIP SWELLING [None]
  - OEDEMA MOUTH [None]
